FAERS Safety Report 9363311 (Version 2)
Quarter: 2013Q3

REPORT INFORMATION
  Report Type: Spontaneous
  Country: ES (occurrence: ES)
  Receive Date: 20130624
  Receipt Date: 20130705
  Transmission Date: 20140515
  Serious: Yes (Hospitalization)
  Sender: FDA-Public Use
  Company Number: ES-BAYER-2013-072926

PATIENT
  Age: 43 Year
  Sex: Female

DRUGS (5)
  1. MIRENA [Suspect]
     Indication: MENORRHAGIA
     Dosage: 20 MCG/24HR, CONT
     Route: 015
     Dates: start: 20130528, end: 201306
  2. MIRENA [Suspect]
     Indication: DYSMENORRHOEA
  3. MIRENA [Suspect]
     Indication: CONTRACEPTION
  4. CYTOTEC [Concomitant]
     Dosage: UNK
     Dates: start: 20130529
  5. AMITRIPTYLINE [Concomitant]

REACTIONS (3)
  - Procedural pain [None]
  - Status migrainosus [Not Recovered/Not Resolved]
  - Headache [Not Recovered/Not Resolved]
